FAERS Safety Report 16571539 (Version 1)
Quarter: 2019Q3

REPORT INFORMATION
  Report Type: Spontaneous
  Country: US (occurrence: US)
  Receive Date: 20190531
  Receipt Date: 20190531
  Transmission Date: 20191004
  Serious: No
  Sender: FDA-Public Use
  Company Number: None

PATIENT
  Age: 83 Year
  Sex: Male

DRUGS (1)
  1. ZYTIGA [Suspect]
     Active Substance: ABIRATERONE ACETATE
     Dates: start: 20190507, end: 20190531

REACTIONS (2)
  - Drug intolerance [None]
  - Malaise [None]

NARRATIVE: CASE EVENT DATE: 20190531
